FAERS Safety Report 12560173 (Version 1)
Quarter: 2016Q3

REPORT INFORMATION
  Report Type: Spontaneous
  Country: US (occurrence: None)
  Receive Date: 20160714
  Receipt Date: 20160714
  Transmission Date: 20161109
  Serious: Yes (Hospitalization)
  Sender: FDA-Public Use
  Company Number: None

PATIENT
  Age: 63 Year
  Sex: Male
  Weight: 83.2 kg

DRUGS (1)
  1. LITHIUM. [Suspect]
     Active Substance: LITHIUM
     Indication: BIPOLAR DISORDER
     Dosage: 600 MG PM PO
     Route: 048
     Dates: start: 20110224, end: 20160122

REACTIONS (6)
  - Tremor [None]
  - Confusional state [None]
  - Asthenia [None]
  - Hypophagia [None]
  - Disorientation [None]
  - Blood creatinine increased [None]

NARRATIVE: CASE EVENT DATE: 20160122
